FAERS Safety Report 8156279-6 (Version None)
Quarter: 2012Q1

REPORT INFORMATION
  Report Type: 
  Country: None (occurrence: None)
  Receive Date: 20120222
  Receipt Date: 20120214
  Transmission Date: 20120608
  Serious: Yes (Other)
  Sender: FDA-Public Use
  Company Number: JP-JNJFOC-20111207123

PATIENT
  Age: 48 Year
  Sex: Male

DRUGS (8)
  1. NITRAZEPAM [Concomitant]
     Route: 048
  2. ROHYPNOL [Concomitant]
     Route: 048
  3. TRAMADOL HYDROCHLORIDE/ACETAMINOPHEN [Suspect]
     Indication: BACK PAIN
     Dosage: 2 DF ONE PER ONE DAY
     Route: 048
     Dates: start: 20111115, end: 20111128
  4. TRAMADOL HYDROCHLORIDE/ACETAMINOPHEN [Suspect]
     Indication: PAIN
     Dosage: 2 DF ONE PER ONE DAY
     Route: 048
     Dates: start: 20111115, end: 20111128
  5. LORAZEPAM [Concomitant]
     Route: 048
  6. PAXIL [Interacting]
     Indication: PRODUCT USED FOR UNKNOWN INDICATION
     Route: 048
  7. DORAL [Concomitant]
     Route: 048
  8. UNKNOWN MEDICATION [Concomitant]
     Route: 048

REACTIONS (2)
  - EUPHORIC MOOD [None]
  - DRUG INTERACTION [None]
